FAERS Safety Report 16914751 (Version 2)
Quarter: 2020Q1

REPORT INFORMATION
  Report Type: Spontaneous
  Country: GB (occurrence: GB)
  Receive Date: 20191014
  Receipt Date: 20200325
  Transmission Date: 20200409
  Serious: Yes (Hospitalization, Disabling, Other)
  Sender: FDA-Public Use
  Company Number: GB-SA-2019SA278503

PATIENT
  Age: 68 Year
  Sex: Female
  Weight: 77 kg

DRUGS (3)
  1. ADCAL D3 [Concomitant]
     Active Substance: CALCIUM CARBONATE\CHOLECALCIFEROL
  2. DUPILUMAB [Suspect]
     Active Substance: DUPILUMAB
     Indication: DERMATITIS ATOPIC
  3. DUPILUMAB [Suspect]
     Active Substance: DUPILUMAB
     Indication: ECZEMA
     Dosage: 300 MG, QOW
     Route: 058
     Dates: start: 20180801, end: 20181101

REACTIONS (7)
  - Enthesopathy [Recovering/Resolving]
  - Arthritis [Recovering/Resolving]
  - Joint swelling [Not Recovered/Not Resolved]
  - Epicondylitis [Recovering/Resolving]
  - Cataract [Not Recovered/Not Resolved]
  - Arthralgia [Recovering/Resolving]
  - Keratoconus [Not Recovered/Not Resolved]

NARRATIVE: CASE EVENT DATE: 20180915
